FAERS Safety Report 24941444 (Version 1)
Quarter: 2025Q1

REPORT INFORMATION
  Report Type: Spontaneous
  Country: HU (occurrence: HU)
  Receive Date: 20250207
  Receipt Date: 20250207
  Transmission Date: 20250409
  Serious: Yes (Other)
  Sender: CHEPLAPHARM
  Company Number: HU-ROCHE-10000192869

PATIENT

DRUGS (1)
  1. VALGANCICLOVIR [Suspect]
     Active Substance: VALGANCICLOVIR
     Indication: Product used for unknown indication

REACTIONS (4)
  - Colitis [Unknown]
  - Pneumonia [Unknown]
  - Respiratory disorder [Unknown]
  - Cytomegalovirus infection [Unknown]
